FAERS Safety Report 10369316 (Version 1)
Quarter: 2014Q1

REPORT INFORMATION
  Report Type: Spontaneous
  Country: US (occurrence: None)
  Receive Date: 20140306
  Receipt Date: 20140306
  Transmission Date: 20141002
  Serious: Yes (Hospitalization)
  Sender: FDA-Public Use
  Company Number: 163-21880-13080115

PATIENT
  Age: 83 Year
  Sex: Female
  Weight: 73.94 kg

DRUGS (8)
  1. REVLIMID (LENALIDOMIDE) (10 MILLIGRAM, CAPSULES) [Suspect]
     Indication: PLASMA CELL MYELOMA
     Dosage: 10 MG, 21 IN 21 D, PO
     Route: 048
     Dates: start: 20130308
  2. NIACIN (NICOTINIC ACID) (TABLETS) [Concomitant]
  3. K-DUR (POTASSIUM CHLORIDE) (TABLETS) [Concomitant]
  4. ASPIRIN (ACETYLSALICYLIC ACID) (TABLETS) [Concomitant]
  5. VITAMIN C (ASCORBIC ACID) (TABLETS) [Concomitant]
  6. VITAMIN B12 (CYANOCOBALAMIN) (UNKNOWN) [Concomitant]
  7. VERAPAMIL (VERAPAMIL) (UNKNOWN) [Concomitant]
  8. CALCIUM PLUS VITAMIN D (CALCIUM D3 ^STADA^) (UNKNOWN) [Concomitant]

REACTIONS (2)
  - Pneumonia [None]
  - White blood cell count decreased [None]
